FAERS Safety Report 9688325 (Version 1)
Quarter: 2013Q4

REPORT INFORMATION
  Report Type: Spontaneous
  Country: US (occurrence: None)
  Receive Date: 20131112
  Receipt Date: 20131112
  Transmission Date: 20140711
  Serious: Yes (Congenital Anomaly)
  Sender: FDA-Public Use
  Company Number: ADR-2013UNK183

PATIENT
  Sex: Male
  Weight: 2.8 kg

DRUGS (2)
  1. NEVIRAPINE [Suspect]
     Indication: HIV INFECTION
     Dosage: 1COURSE
  2. TRUVADA [Suspect]
     Indication: HIV INFECTION
     Dosage: 1 COURSE

REACTIONS (2)
  - Spina bifida [None]
  - Maternal drugs affecting foetus [None]
